FAERS Safety Report 22150574 (Version 1)
Quarter: 2023Q1

REPORT INFORMATION
  Report Type: Spontaneous
  Country: US (occurrence: None)
  Receive Date: 20230329
  Receipt Date: 20230329
  Transmission Date: 20230418
  Serious: No
  Sender: FDA-Public Use
  Company Number: 2023A070857

PATIENT
  Sex: Male
  Weight: 136.1 kg

DRUGS (1)
  1. FARXIGA [Suspect]
     Active Substance: DAPAGLIFLOZIN PROPANEDIOL
     Indication: Renal disorder
     Dosage: UNKNOWN
     Route: 048

REACTIONS (3)
  - Frequent bowel movements [Unknown]
  - Obesity [Unknown]
  - Diabetes mellitus [Unknown]
